FAERS Safety Report 17983915 (Version 1)
Quarter: 2020Q3

REPORT INFORMATION
  Report Type: Report from Study
  Country: SE (occurrence: SE)
  Receive Date: 20200706
  Receipt Date: 20200706
  Transmission Date: 20201103
  Serious: Yes (Other)
  Sender: FDA-Public Use
  Company Number: SE-ASTELLAS-2020US022661

PATIENT
  Age: 13 Year
  Sex: Female

DRUGS (1)
  1. TACROLIMUS. [Suspect]
     Active Substance: TACROLIMUS
     Indication: LIVER TRANSPLANT
     Dosage: UNK, UNKNOWN FREQ. (10?15 NG/ML FOR 2 WEEKS AND TAPERED TO 3?5 NG/ML DURING THE FIRST 3 MONTHS)
     Route: 065

REACTIONS (4)
  - Food allergy [Unknown]
  - Angioedema [Unknown]
  - Allergy to animal [Unknown]
  - Conjunctivitis allergic [Unknown]
